FAERS Safety Report 17816491 (Version 5)
Quarter: 2023Q2

REPORT INFORMATION
  Report Type: Spontaneous
  Country: US (occurrence: US)
  Receive Date: 20200522
  Receipt Date: 20230602
  Transmission Date: 20230722
  Serious: No
  Sender: FDA-Public Use
  Company Number: US-PFIZER INC-2020201390

PATIENT
  Age: 73 Year
  Sex: Female

DRUGS (1)
  1. XELJANZ XR [Suspect]
     Active Substance: TOFACITINIB CITRATE
     Dosage: 11 MG

REACTIONS (6)
  - Blood potassium increased [Unknown]
  - Bronchitis [Unknown]
  - Blood cholesterol abnormal [Unknown]
  - Memory impairment [Unknown]
  - Pain [Unknown]
  - Scoliosis [Unknown]
